FAERS Safety Report 22238008 (Version 1)
Quarter: 2023Q2

REPORT INFORMATION
  Report Type: Spontaneous
  Country: US (occurrence: US)
  Receive Date: 20230421
  Receipt Date: 20230421
  Transmission Date: 20230721
  Serious: No
  Sender: FDA-Public Use
  Company Number: US-AMGEN-USASP2023066473

PATIENT
  Age: 64 Year
  Sex: Female

DRUGS (1)
  1. REPATHA [Suspect]
     Active Substance: EVOLOCUMAB
     Indication: Hypercholesterolaemia
     Dosage: 140 MILLIGRAM, Q2WK
     Route: 058

REACTIONS (6)
  - Device difficult to use [Unknown]
  - COVID-19 [Recovered/Resolved]
  - Helicobacter infection [Recovered/Resolved]
  - Product dispensing error [Unknown]
  - Drug dose omission by device [Unknown]
  - Post-acute COVID-19 syndrome [Not Recovered/Not Resolved]

NARRATIVE: CASE EVENT DATE: 20230412
